FAERS Safety Report 17345127 (Version 2)
Quarter: 2020Q3

REPORT INFORMATION
  Report Type: Report from Study
  Country: BR (occurrence: BR)
  Receive Date: 20200129
  Receipt Date: 20200823
  Transmission Date: 20201105
  Serious: Yes (Hospitalization)
  Sender: FDA-Public Use
  Company Number: BR-ALEXION PHARMACEUTICALS INC.-A202000724

PATIENT
  Age: 30 Year
  Sex: Female
  Weight: 91 kg

DRUGS (11)
  1. DIPYRONE [Concomitant]
     Active Substance: DIPYRONE
     Indication: ABDOMINAL PAIN
     Dosage: 500 MG, QID
     Route: 048
     Dates: start: 20191230, end: 20191230
  2. RANITIDINE. [Concomitant]
     Active Substance: RANITIDINE
     Indication: ABDOMINAL PAIN
     Dosage: 50 MG, TID
     Route: 042
     Dates: start: 20200109, end: 20200109
  3. RAVULIZUMAB. [Suspect]
     Active Substance: RAVULIZUMAB
     Dosage: UNK
     Route: 058
     Dates: start: 20200116
  4. SIMETHICONE (DIMETHICONE) [Concomitant]
     Active Substance: DIMETHICONE
     Indication: FLATULENCE
     Dosage: 40 MG, QID
     Route: 048
     Dates: start: 20200102, end: 20200115
  5. SODIUM CHLORIDE. [Concomitant]
     Active Substance: SODIUM CHLORIDE
     Indication: FLUID REPLACEMENT
     Dosage: 500 ML, SINGLE
     Route: 042
     Dates: start: 20200109, end: 20200109
  6. SCOPOLAMINE BUTYLBROMIDE [Concomitant]
     Active Substance: SCOPOLAMINE
     Indication: ABDOMINAL PAIN
     Dosage: 20 MG, BID
     Route: 042
     Dates: start: 20200109, end: 20200109
  7. RAVULIZUMAB. [Suspect]
     Active Substance: RAVULIZUMAB
     Dosage: UNK
     Route: 058
     Dates: start: 20200730
  8. IBUPROFEN. [Concomitant]
     Active Substance: IBUPROFEN
     Indication: ABDOMINAL PAIN
     Dosage: 600 MG, QID
     Route: 048
     Dates: start: 20200102, end: 20200104
  9. DIPYRONE [Concomitant]
     Active Substance: DIPYRONE
     Dosage: 1000 MG, TID
     Route: 042
     Dates: start: 20200109, end: 20200109
  10. RAVULIZUMAB. [Suspect]
     Active Substance: RAVULIZUMAB
     Indication: PAROXYSMAL NOCTURNAL HAEMOGLOBINURIA
     Dosage: 2700 MG, UNK
     Route: 042
     Dates: start: 20191003
  11. TRANSAMIN [Concomitant]
     Active Substance: TRANEXAMIC ACID
     Indication: VAGINAL HAEMORRHAGE
     Dosage: 250 MG, QID
     Route: 048
     Dates: start: 20191230, end: 20200102

REACTIONS (2)
  - Ovarian cyst [Recovered/Resolved]
  - Adnexal torsion [Recovered/Resolved]

NARRATIVE: CASE EVENT DATE: 20200116
